FAERS Safety Report 9667653 (Version 1)
Quarter: 2013Q4

REPORT INFORMATION
  Report Type: Spontaneous
  Country: US (occurrence: US)
  Receive Date: 20131101
  Receipt Date: 20131101
  Transmission Date: 20140711
  Serious: No
  Sender: FDA-Public Use
  Company Number: US-SAVIENT-2012S1000086

PATIENT
  Age: 73 Year
  Sex: Male
  Weight: 99.79 kg

DRUGS (6)
  1. KRYSTEXXA INJECTION [Suspect]
     Indication: GOUTY ARTHRITIS
     Route: 042
     Dates: start: 20120802, end: 20120802
  2. ALL OTHER THERAPEUTIC PRODUCTS [Concomitant]
     Indication: PREMEDICATION
     Dates: start: 20120802, end: 20120802
  3. ALL OTHER THERAPEUTIC PRODUCTS [Concomitant]
     Indication: PRODUCT USED FOR UNKNOWN INDICATION
     Dates: start: 20120802, end: 20120802
  4. PREDNISONE [Concomitant]
     Indication: PRODUCT USED FOR UNKNOWN INDICATION
     Dates: start: 2002
  5. COLCHICINE [Concomitant]
     Indication: GOUT
     Dates: start: 201208
  6. ALLOPURINOL [Concomitant]
     Indication: PRODUCT USED FOR UNKNOWN INDICATION
     Dates: end: 201207

REACTIONS (2)
  - Pain [Not Recovered/Not Resolved]
  - Gout [Unknown]
